FAERS Safety Report 6591081-8 (Version None)
Quarter: 2010Q1

REPORT INFORMATION
  Report Type: 
  Country: None (occurrence: None)
  Receive Date: 20100219
  Receipt Date: 20100208
  Transmission Date: 20100710
  Serious: Yes (Death)
  Sender: FDA-Public Use
  Company Number: DE-PURDUE-USA-2010-0042248

PATIENT
  Age: 46 Year
  Sex: Male

DRUGS (2)
  1. TRAMADOL HCL [Suspect]
     Indication: DRUG USE FOR UNKNOWN INDICATION
  2. NICOTINE [Suspect]
     Indication: DRUG USE FOR UNKNOWN INDICATION
     Dosage: 25 PATCH, UNK
     Route: 062

REACTIONS (3)
  - CARDIOPULMONARY FAILURE [None]
  - COMPLETED SUICIDE [None]
  - DRUG TOXICITY [None]
